FAERS Safety Report 14455688 (Version 1)
Quarter: 2018Q1

REPORT INFORMATION
  Report Type: Report from Study
  Country: None (occurrence: US)
  Receive Date: 20180130
  Receipt Date: 20180130
  Transmission Date: 20180509
  Serious: Yes (Life-Threatening, Other)
  Sender: FDA-Public Use
  Company Number: US-ABBVIE-18K-163-2211563-00

PATIENT
  Sex: Male
  Weight: 68.1 kg

DRUGS (2)
  1. LISINOPRIL. [Concomitant]
     Active Substance: LISINOPRIL
     Indication: HYPERTENSION
  2. HUMIRA [Suspect]
     Active Substance: ADALIMUMAB
     Indication: ANKYLOSING SPONDYLITIS
     Route: 058
     Dates: start: 201708, end: 201710

REACTIONS (5)
  - Cardiac ventricular thrombosis [Recovering/Resolving]
  - Normal pressure hydrocephalus [Not Recovered/Not Resolved]
  - Myocardial infarction [Recovering/Resolving]
  - Coronary artery thrombosis [Recovering/Resolving]
  - Dressler^s syndrome [Recovering/Resolving]

NARRATIVE: CASE EVENT DATE: 201710
